FAERS Safety Report 7273780-8 (Version None)
Quarter: 2011Q1

REPORT INFORMATION
  Report Type: 
  Country: None (occurrence: None)
  Receive Date: 20110203
  Receipt Date: 20110202
  Transmission Date: 20110831
  Serious: Yes (Hospitalization)
  Sender: FDA-Public Use
  Company Number: DE-PFIZER INC-2009297129

PATIENT
  Age: 66 Year
  Sex: Male

DRUGS (6)
  1. SPIRONOLACTONE [Suspect]
     Dosage: 100 MG, 1X/DAY
     Dates: end: 20091111
  2. TORSEMIDE [Suspect]
     Dosage: 10 MG, 3X/DAY
     Dates: end: 20091111
  3. ALLOPURINOL [Concomitant]
     Dosage: 150 MG, 1X/DAY
  4. SUNITINIB MALATE [Suspect]
     Indication: HEPATIC NEOPLASM MALIGNANT
     Dosage: 37.5 MG, 1X/DAY
     Route: 048
     Dates: start: 20090826, end: 20091112
  5. AMLODIPINE [Concomitant]
     Dosage: 10 MG, 1X/DAY
  6. PANTOZOL [Concomitant]
     Dosage: 40 MG, 1X/DAY

REACTIONS (2)
  - RENAL FAILURE [None]
  - ASCITES [None]
